FAERS Safety Report 16601919 (Version 2)
Quarter: 2019Q3

REPORT INFORMATION
  Report Type: Spontaneous
  Country: FR (occurrence: FR)
  Receive Date: 20190719
  Receipt Date: 20190926
  Transmission Date: 20191004
  Serious: Yes (Hospitalization)
  Sender: FDA-Public Use
  Company Number: PHHY2019FR164006

PATIENT
  Age: 52 Year
  Sex: Female

DRUGS (2)
  1. ZOLEDRONIC ACID [Suspect]
     Active Substance: ZOLEDRONIC ACID
     Indication: PLASMA CELL MYELOMA
     Dosage: UNK UNK, QMO
     Route: 042
  2. LENALIDOMIDE [Suspect]
     Active Substance: LENALIDOMIDE
     Indication: PLASMA CELL MYELOMA
     Dosage: UNK
     Route: 048

REACTIONS (14)
  - Renal tubular dysfunction [Recovered/Resolved]
  - Asthenia [Recovered/Resolved]
  - Aminoaciduria [Recovered/Resolved]
  - Glycosuria [Recovered/Resolved]
  - Hypokalaemia [Recovered/Resolved]
  - Metabolic acidosis [Recovered/Resolved]
  - Acute kidney injury [Recovering/Resolving]
  - Product use in unapproved indication [Unknown]
  - Fanconi syndrome acquired [Recovered/Resolved]
  - Hypouricaemia [Recovered/Resolved]
  - Hypophosphataemia [Recovered/Resolved]
  - Renal tubular necrosis [Recovering/Resolving]
  - Proteinuria [Recovered/Resolved]
  - Weight decreased [Recovered/Resolved]
